FAERS Safety Report 21937328 (Version 1)
Quarter: 2023Q1

REPORT INFORMATION
  Report Type: Spontaneous
  Country: US (occurrence: None)
  Receive Date: 20230131
  Receipt Date: 20230131
  Transmission Date: 20230418
  Serious: No
  Sender: FDA-Public Use
  Company Number: None

PATIENT
  Age: 59 Year
  Sex: Male

DRUGS (2)
  1. EVEROLIMUS [Suspect]
     Active Substance: EVEROLIMUS
     Indication: Renal cancer
     Dosage: 5MG DAILY ORAL?
     Route: 048
     Dates: start: 202210, end: 20230131
  2. LENVIMA [Suspect]
     Active Substance: LENVATINIB

REACTIONS (8)
  - Toxicity to various agents [None]
  - Nausea [None]
  - Vomiting [None]
  - Decreased appetite [None]
  - Pain in jaw [None]
  - Rash [None]
  - Arthralgia [None]
  - Therapy interrupted [None]

NARRATIVE: CASE EVENT DATE: 20230131
